FAERS Safety Report 8326724-1 (Version None)
Quarter: 2012Q2

REPORT INFORMATION
  Report Type: 
  Country: None (occurrence: None)
  Receive Date: 20120501
  Receipt Date: 20120425
  Transmission Date: 20120825
  Serious: Yes (Hospitalization)
  Sender: FDA-Public Use
  Company Number: KR-JNJFOC-20101106316

PATIENT
  Sex: Female
  Weight: 43.2 kg

DRUGS (3)
  1. PALIPERIDONE [Suspect]
     Indication: SCHIZOPHRENIA
     Route: 030
     Dates: start: 20101111, end: 20101111
  2. ZIPRASIDONE HCL [Concomitant]
     Indication: SCHIZOPHRENIA
     Route: 048
     Dates: start: 20100908
  3. GEWORIN [Suspect]
     Indication: PRODUCT USED FOR UNKNOWN INDICATION
     Dates: start: 20101113, end: 20101113

REACTIONS (3)
  - SUICIDE ATTEMPT [None]
  - LIVER FUNCTION TEST ABNORMAL [None]
  - SCHIZOPHRENIA [None]
